FAERS Safety Report 8337287-9 (Version None)
Quarter: 2012Q2

REPORT INFORMATION
  Report Type: 
  Country: None (occurrence: None)
  Receive Date: 20120502
  Receipt Date: 20120423
  Transmission Date: 20120825
  Serious: Yes (Disabling)
  Sender: FDA-Public Use
  Company Number: 2012SP014392

PATIENT
  Age: 56 Year
  Sex: Male

DRUGS (6)
  1. EFFEXOR XR [Suspect]
     Indication: ANXIETY
     Dosage: 75 MG;PO, 150 MG;HS;PO
     Route: 048
     Dates: start: 20120131
  2. EFFEXOR XR [Suspect]
     Indication: DEPRESSION
     Dosage: 75 MG;PO, 150 MG;HS;PO
     Route: 048
     Dates: start: 20120131
  3. EFFEXOR XR [Suspect]
     Indication: ANXIETY
     Dosage: 75 MG;PO, 150 MG;HS;PO
     Route: 048
     Dates: end: 20111115
  4. EFFEXOR XR [Suspect]
     Indication: DEPRESSION
     Dosage: 75 MG;PO, 150 MG;HS;PO
     Route: 048
     Dates: end: 20111115
  5. REMERON [Suspect]
     Indication: DEPRESSION
     Dosage: 15 MG; PO, 30 MG;HS;PO
     Route: 048
     Dates: end: 20111115
  6. REMERON [Suspect]
     Indication: ANXIETY
     Dosage: 15 MG; PO, 30 MG;HS;PO
     Route: 048
     Dates: end: 20111115

REACTIONS (3)
  - IRRITABILITY [None]
  - IMPAIRED WORK ABILITY [None]
  - ANXIETY [None]
